FAERS Safety Report 14249222 (Version 1)
Quarter: 2017Q4

REPORT INFORMATION
  Report Type: Spontaneous
  Country: BE (occurrence: BE)
  Receive Date: 20171204
  Receipt Date: 20171204
  Transmission Date: 20180321
  Serious: Yes (Hospitalization)
  Sender: FDA-Public Use
  Company Number: BE-PFIZER INC-2017489572

PATIENT
  Age: 80 Year
  Sex: Male

DRUGS (12)
  1. MICARDIS [Concomitant]
     Active Substance: TELMISARTAN
     Dosage: 80 + 25
  2. PLAVIX [Concomitant]
     Active Substance: CLOPIDOGREL BISULFATE
     Dosage: UNK
  3. CORUNO [Concomitant]
     Active Substance: MOLSIDOMINE
     Dosage: UNK
  4. MEDROL [Suspect]
     Active Substance: METHYLPREDNISOLONE
     Dosage: 8 MG, FOR SEVERAL WEEKS
     Dates: end: 20171105
  5. ASAFLOW [Concomitant]
     Active Substance: ASPIRIN
     Dosage: 10 UNK, UNK
  6. MEDROL [Suspect]
     Active Substance: METHYLPREDNISOLONE
     Dosage: 32 MG, FOR 2 WEEKS
  7. PANTOPRAZOLE [Concomitant]
     Active Substance: PANTOPRAZOLE
     Dosage: 40 UNK, UNK
  8. MEDROL [Suspect]
     Active Substance: METHYLPREDNISOLONE
     Dosage: 24 MG, FOR 2 WEEKS
  9. LENDORMIN [Concomitant]
     Active Substance: BROTIZOLAM
     Dosage: UNK
  10. LIPITOR [Concomitant]
     Active Substance: ATORVASTATIN CALCIUM
     Dosage: 60 UNK, UNK
  11. MEDROL [Suspect]
     Active Substance: METHYLPREDNISOLONE
     Dosage: 16 MG, FOR 2 WEEKS
  12. TEMESTA /00273201/ [Concomitant]
     Active Substance: LORAZEPAM
     Dosage: UNK

REACTIONS (8)
  - Arthralgia [Not Recovered/Not Resolved]
  - Eye pain [Recovering/Resolving]
  - Erythema [Not Recovered/Not Resolved]
  - Joint swelling [Not Recovered/Not Resolved]
  - Decreased appetite [Not Recovered/Not Resolved]
  - Gait disturbance [Not Recovered/Not Resolved]
  - Diarrhoea [Recovering/Resolving]
  - Lymphadenopathy [Recovering/Resolving]

NARRATIVE: CASE EVENT DATE: 201707
